FAERS Safety Report 8090544-6 (Version None)
Quarter: 2012Q1

REPORT INFORMATION
  Report Type: 
  Country: None (occurrence: None)
  Receive Date: 20120129
  Receipt Date: 20111110
  Transmission Date: 20120608
  Serious: No
  Sender: FDA-Public Use
  Company Number: US-ABBOTT-11P-163-0873711-00

PATIENT
  Age: 19 Year
  Sex: Female

DRUGS (3)
  1. HUMIRA [Suspect]
     Indication: CROHN'S DISEASE
     Dosage: (160 MG, LOADING DOSE)
     Dates: start: 20111105
  2. PREDNISONE TAB [Concomitant]
     Indication: PRODUCT USED FOR UNKNOWN INDICATION
  3. PROVENTIL-HFA [Concomitant]
     Indication: ASTHMA
     Route: 055

REACTIONS (3)
  - RESPIRATORY DISORDER [None]
  - BREATH SOUNDS ABNORMAL [None]
  - PAIN [None]
